FAERS Safety Report 22091009 (Version 1)
Quarter: 2023Q1

REPORT INFORMATION
  Report Type: Other
  Country: US (occurrence: None)
  Receive Date: 20230314
  Receipt Date: 20230314
  Transmission Date: 20230418
  Serious: Yes (Hospitalization)
  Sender: FDA-Public Use
  Company Number: US-ROCHE-3304804

PATIENT
  Age: 67 Year
  Sex: Female
  Weight: 63.106 kg

DRUGS (13)
  1. OCREVUS [Suspect]
     Active Substance: OCRELIZUMAB
     Indication: Multiple sclerosis
     Dosage: PREVIOUS LAST DATE OF TREATMENT: 05/MAY/2021
     Route: 042
     Dates: start: 2000
  2. AUBAGIO [Concomitant]
     Active Substance: TERIFLUNOMIDE
  3. MACRODANTIN [Concomitant]
     Active Substance: NITROFURANTOIN
     Dosage: 1 CAPSULE BY MOUTH BID
  4. IBANDRONATE SODIUM [Concomitant]
     Active Substance: IBANDRONATE SODIUM
     Dosage: 150 MG, 1 TABLET BY MOUTH ONCE A DAY
  5. MAGOX [Concomitant]
     Dosage: 400 MG 1 TABLET BY MOUTH BID
  6. PROMETHAZINE [Concomitant]
     Active Substance: PROMETHAZINE HYDROCHLORIDE
     Dosage: 25 MG 1 TABLET BY MOUTH SELECT FREQUENCY
  7. SUMATRIPTAN SUCCINATE [Concomitant]
     Active Substance: SUMATRIPTAN SUCCINATE
     Dosage: 100 MG 1 TABLET BY MOUTH
  8. ERGOCALCIFEROL [Concomitant]
     Active Substance: ERGOCALCIFEROL
     Dosage: 2000 UNIT 1 CAPSULE BY MOUTH AS DIRECTED
  9. PRILOSEC [Concomitant]
     Active Substance: OMEPRAZOLE MAGNESIUM
     Dosage: 20 MG 1 TABLET ORAL DAILY
  10. FIORINAL [Concomitant]
     Active Substance: ASPIRIN\BUTALBITAL\CAFFEINE
     Dosage: 50-325-40 MG 1 CAPSULE ORAL AS DIRECTED
  11. ACYCLOVIR [Concomitant]
     Active Substance: ACYCLOVIR
     Dosage: 400 MG 1 TABLET BY MOUTH TID
  12. LISINOPRIL AND HYDROCHLOROTHIAZIDE [Concomitant]
     Active Substance: HYDROCHLOROTHIAZIDE\LISINOPRIL
     Dosage: 20-12.5MG 1 TABLET BY MOUTH DAILY
  13. TOPROL XL [Concomitant]
     Active Substance: METOPROLOL SUCCINATE
     Dosage: 50 MG 1 TABLET BY MOUTH DAILY

REACTIONS (1)
  - Cholecystitis infective [Recovered/Resolved]
